FAERS Safety Report 6634726-6 (Version None)
Quarter: 2010Q1

REPORT INFORMATION
  Report Type: 
  Country: None (occurrence: None)
  Receive Date: 20100315
  Receipt Date: 20100308
  Transmission Date: 20100710
  Serious: Yes (Hospitalization)
  Sender: FDA-Public Use
  Company Number: JP-BAYER-200914326BYL

PATIENT
  Age: 77 Year
  Sex: Male
  Weight: 53 kg

DRUGS (10)
  1. NEXAVAR [Suspect]
     Indication: HEPATIC NEOPLASM MALIGNANT
     Dosage: TOTAL DAILY DOSE: 800 MG  UNIT DOSE: 200 MG
     Route: 048
     Dates: start: 20091024, end: 20091104
  2. NEXAVAR [Suspect]
     Dosage: UNIT DOSE: 200 MG
     Route: 048
     Dates: start: 20091225
  3. AMARYL [Concomitant]
     Dosage: UNIT DOSE: 1 MG
     Route: 048
  4. NORVASC [Concomitant]
     Dosage: UNIT DOSE: 5 MG
     Route: 048
  5. DIOVAN [Concomitant]
     Dosage: UNIT DOSE: 80 MG
     Route: 048
  6. BASEN OD [Concomitant]
     Dosage: UNIT DOSE: 0.3 MG
     Route: 048
  7. KAKKONTO ESSENCE [Concomitant]
     Indication: NASOPHARYNGITIS
     Dosage: UNIT DOSE: 13.75 G
     Route: 048
     Dates: start: 20091101
  8. LAC B [Concomitant]
     Indication: DIARRHOEA
     Dosage: UNIT DOSE: 10 MG
     Route: 048
     Dates: start: 20091101, end: 20091106
  9. ENTERONON R [Concomitant]
     Indication: DIARRHOEA
     Dosage: UNIT DOSE: 100 MG
     Route: 048
     Dates: start: 20091107, end: 20091116
  10. LIVACT [Concomitant]
     Indication: ASCITES
     Dosage: UNIT DOSE: 4.15 MG
     Route: 048
     Dates: start: 20091112, end: 20091117

REACTIONS (7)
  - DIARRHOEA [None]
  - DYSPNOEA [None]
  - GAMMA-GLUTAMYLTRANSFERASE INCREASED [None]
  - HAEMOGLOBIN DECREASED [None]
  - HAEMORRHAGE [None]
  - HEPATIC FUNCTION ABNORMAL [None]
  - PYREXIA [None]
